FAERS Safety Report 5962440-9 (Version None)
Quarter: 2008Q4

REPORT INFORMATION
  Report Type: 
  Country: None (occurrence: None)
  Receive Date: 20081121
  Receipt Date: 20081110
  Transmission Date: 20090506
  Serious: Yes (Other)
  Sender: FDA-Public Use
  Company Number: US-PFIZER INC-2008002388

PATIENT
  Sex: Female

DRUGS (4)
  1. DILANTIN [Suspect]
     Indication: PROPHYLAXIS
     Dates: start: 19780101
  2. PHENYTOIN [Suspect]
  3. ALL OTHER THERAPEUTIC PRODUCTS [Suspect]
  4. KEPPRA [Suspect]

REACTIONS (8)
  - ALLERGY TO CHEMICALS [None]
  - ANTICONVULSANT DRUG LEVEL DECREASED [None]
  - DIARRHOEA [None]
  - DRUG HYPERSENSITIVITY [None]
  - GINGIVAL RECESSION [None]
  - HYPERSENSITIVITY [None]
  - PRURITUS [None]
  - THYROIDECTOMY [None]
